FAERS Safety Report 6630872-1 (Version None)
Quarter: 2010Q1

REPORT INFORMATION
  Report Type: 
  Country: None (occurrence: None)
  Receive Date: 20100311
  Receipt Date: 20100301
  Transmission Date: 20100710
  Serious: Yes (Hospitalization)
  Sender: FDA-Public Use
  Company Number: FR-ROCHE-631625

PATIENT
  Sex: Male
  Weight: 79 kg

DRUGS (8)
  1. BEVACIZUMAB [Suspect]
     Dosage: OTHER INDICATION: METASTATIC COLONIC CANCER
     Route: 042
     Dates: start: 20081113, end: 20090327
  2. BEVACIZUMAB [Suspect]
     Route: 042
     Dates: start: 20090505
  3. FLUOROURACIL [Suspect]
     Route: 042
     Dates: start: 20081113, end: 20090327
  4. FLUOROURACIL [Suspect]
     Route: 042
     Dates: start: 20090505
  5. OXALIPLATINE [Suspect]
     Route: 042
     Dates: start: 20090226, end: 20090327
  6. OXALIPLATINE [Suspect]
     Route: 042
     Dates: start: 20090505
  7. CARDENSIEL [Suspect]
     Indication: HYPERTENSION
     Dosage: START DATE: {2009
     Route: 048
  8. KARDEGIC [Suspect]
     Indication: CORONARY ARTERY DISEASE
     Dosage: START DATE: {2009
     Route: 048

REACTIONS (2)
  - DEHYDRATION [None]
  - RENAL FAILURE [None]
